FAERS Safety Report 24960391 (Version 3)
Quarter: 2025Q1

REPORT INFORMATION
  Report Type: Spontaneous
  Country: CH (occurrence: CH)
  Receive Date: 20250212
  Receipt Date: 20250225
  Transmission Date: 20250409
  Serious: Yes (Other)
  Sender: PFIZER
  Company Number: CH-PFIZER INC-202500029334

PATIENT
  Age: 79 Year
  Sex: Male

DRUGS (1)
  1. VYNDAQEL [Suspect]
     Active Substance: TAFAMIDIS MEGLUMINE

REACTIONS (1)
  - Glioblastoma [Not Recovered/Not Resolved]
